FAERS Safety Report 4364321-3 (Version None)
Quarter: 2004Q2

REPORT INFORMATION
  Report Type: 
  Country: None (occurrence: None)
  Receive Date: 20040525
  Receipt Date: 20030626
  Transmission Date: 20050107
  Serious: No
  Sender: FDA-Public Use
  Company Number: US-BRISTOL-MYERS SQUIBB COMPANY-12312443

PATIENT
  Age: 63 Year
  Sex: Female
  Weight: 96 kg

DRUGS (4)
  1. CYTOXAN [Suspect]
     Indication: BREAST CANCER
     Route: 042
     Dates: start: 20030618, end: 20030618
  2. ZOFRAN [Concomitant]
     Indication: PREMEDICATION
  3. DECADRON [Concomitant]
     Indication: PREMEDICATION
  4. LIPITOR [Concomitant]
     Route: 042

REACTIONS (1)
  - URTICARIA [None]
